FAERS Safety Report 8616014-1 (Version None)
Quarter: 2012Q3

REPORT INFORMATION
  Report Type: 
  Country: None (occurrence: None)
  Receive Date: 20120823
  Receipt Date: 20120731
  Transmission Date: 20120928
  Serious: No
  Sender: FDA-Public Use
  Company Number: US-009507513-1208USA000519

PATIENT

DRUGS (3)
  1. REBETOL [Suspect]
     Dosage: 200 MG, UNKNOWN
     Route: 048
     Dates: end: 20120713
  2. PROCRIT [Suspect]
     Dosage: 1 ML, QW
     Route: 058
     Dates: end: 20120713
  3. PEG-INTRON [Suspect]
     Dosage: 120 MICROGRAM, UNKNOWN
     Route: 058
     Dates: end: 20120713

REACTIONS (2)
  - DYSPNOEA [None]
  - GLAUCOMA [None]
